FAERS Safety Report 11480230 (Version 2)
Quarter: 2015Q4

REPORT INFORMATION
  Report Type: Spontaneous
  Country: US (occurrence: US)
  Receive Date: 20150909
  Receipt Date: 20151001
  Transmission Date: 20160304
  Serious: No
  Sender: FDA-Public Use
  Company Number: US-PFIZER INC-2015269669

PATIENT
  Age: 89 Year
  Sex: Female
  Weight: 60 kg

DRUGS (13)
  1. LEVOTHYROXINE. [Suspect]
     Active Substance: LEVOTHYROXINE
     Dosage: 112 ?G, UNK
  2. NORVASC [Suspect]
     Active Substance: AMLODIPINE BESYLATE
     Indication: HYPERTENSION
     Dosage: 5 MG, 1X/DAY (IN THE MORNING 1 IN 1 D)
     Route: 048
  3. NORVASC [Suspect]
     Active Substance: AMLODIPINE BESYLATE
     Dosage: 2.5 MG, 1X/DAY (IN THE EVENING 1 IN 1 D)
     Route: 048
  4. ACIDOVERT [Suspect]
     Active Substance: CALCIUM\MAGNESIUM
     Indication: VITAMIN SUPPLEMENTATION
     Dosage: UNK, DAILY (1 TO 2 TABLETS)
  5. CALCIUM [Concomitant]
     Active Substance: CALCIUM
     Dosage: UNK
  6. CRESTOR [Concomitant]
     Active Substance: ROSUVASTATIN CALCIUM
     Indication: BLOOD CHOLESTEROL
     Dosage: UNK
  7. VITAMIN D [Concomitant]
     Active Substance: CHOLECALCIFEROL
     Dosage: 20 MG, UNK
     Dates: start: 1980
  8. BENICAR HCTZ [Concomitant]
     Dosage: UNK
     Dates: start: 201406
  9. SYNTHROID [Suspect]
     Active Substance: LEVOTHYROXINE SODIUM
     Indication: HYPOTHYROIDISM
     Dosage: UNK, 1X/DAY (MCG, 1 IN 1 D)
     Route: 048
  10. SYNTHROID [Suspect]
     Active Substance: LEVOTHYROXINE SODIUM
     Dosage: 112 ?G, 1X/DAY
     Route: 048
  11. OMEGA 3 [Concomitant]
     Active Substance: OMEGA-3 FATTY ACIDS
     Dosage: UNK
  12. AMIODARONE HCL [Suspect]
     Active Substance: AMIODARONE HYDROCHLORIDE
     Indication: BLOOD PRESSURE ABNORMAL
     Dosage: 100 MG, 1X/DAY
     Route: 048
  13. CALCIUM CARBONATE. [Suspect]
     Active Substance: CALCIUM CARBONATE
     Indication: BONE DISORDER
     Dosage: 2 DF, UNK

REACTIONS (5)
  - Malaise [Unknown]
  - Abdominal pain upper [Unknown]
  - Nausea [Unknown]
  - Drug ineffective [Unknown]
  - Throat irritation [Unknown]
